FAERS Safety Report 18744112 (Version 1)
Quarter: 2021Q1

REPORT INFORMATION
  Report Type: Spontaneous
  Country: SG (occurrence: SG)
  Receive Date: 20210115
  Receipt Date: 20210115
  Transmission Date: 20210419
  Serious: Yes (Other)
  Sender: FDA-Public Use
  Company Number: SG-JNJFOC-20210111887

PATIENT

DRUGS (1)
  1. PARACETAMOL [Suspect]
     Active Substance: ACETAMINOPHEN
     Indication: PRODUCT USED FOR UNKNOWN INDICATION
     Route: 065

REACTIONS (8)
  - Liver palpable [Unknown]
  - Red blood cell abnormality [Unknown]
  - Haemophagocytic lymphohistiocytosis [Unknown]
  - Blast cells present [Unknown]
  - Pallor [Unknown]
  - Leukoerythroblastosis [Unknown]
  - Jaundice [Unknown]
  - Spleen palpable [Unknown]
